FAERS Safety Report 14899825 (Version 1)
Quarter: 2018Q2

REPORT INFORMATION
  Report Type: Spontaneous
  Country: US (occurrence: US)
  Receive Date: 20180516
  Receipt Date: 20180516
  Transmission Date: 20180711
  Serious: Yes (Other)
  Sender: FDA-Public Use
  Company Number: US-PROCTER_AND_GAMBLE-GS18057005

PATIENT

DRUGS (9)
  1. CREST PRO-HEALTH ADVANCED [Suspect]
     Active Substance: STANNOUS FLUORIDE
     Route: 002
  2. CREST PRO-HEALTH ADVANCED W/EXTRA DEEP CLEAN [Suspect]
     Active Substance: SODIUM FLUORIDE
     Dosage: UNK
     Route: 002
  3. CREST 3D WHITE LUXE [Suspect]
     Active Substance: POTASSIUM NITRATE\SODIUM FLUORIDE
     Route: 002
  4. CREST PRO-HEALTH ADVANCED W/EXTRA DEEP CLEAN [Suspect]
     Active Substance: SODIUM FLUORIDE
     Route: 002
  5. CREST 3D WHITE WHITESTRIPS DENTAL WHITENING KIT, VERSION UNKNOWN [Suspect]
     Active Substance: HYDROGEN PEROXIDE
     Route: 002
  6. CREST 3D WHITE LUXE DIAMOND STRONG [Suspect]
     Active Substance: SODIUM FLUORIDE
     Route: 002
  7. CREST 3D WHITE LUXE DIAMOND STRONG [Suspect]
     Active Substance: SODIUM FLUORIDE
     Route: 002
  8. FLOSS [Concomitant]
  9. CREST PRO-HEALTH ADVANCED W/EXTRA DEEP CLEAN [Suspect]
     Active Substance: SODIUM FLUORIDE
     Dosage: UNK
     Route: 002

REACTIONS (5)
  - Tooth discolouration [Unknown]
  - Toothache [Unknown]
  - Drug ineffective [Unknown]
  - Condition aggravated [Unknown]
  - Sensitivity of teeth [Unknown]
